FAERS Safety Report 9067676 (Version 1)
Quarter: 2013Q1

REPORT INFORMATION
  Report Type: Spontaneous
  Country: CA (occurrence: CA)
  Receive Date: 20130206
  Receipt Date: 20130206
  Transmission Date: 20140127
  Serious: Yes (Other)
  Sender: FDA-Public Use
  Company Number: CA-BAYER-2013-012549

PATIENT
  Age: 31 Year
  Sex: Female

DRUGS (1)
  1. BETASERON [Suspect]
     Indication: RELAPSING-REMITTING MULTIPLE SCLEROSIS
     Dosage: UNK
     Dates: start: 2008

REACTIONS (5)
  - Multiple sclerosis relapse [None]
  - Hypoaesthesia [None]
  - Multiple sclerosis relapse [None]
  - Multiple sclerosis relapse [None]
  - Multiple sclerosis relapse [None]
